FAERS Safety Report 7278336-9 (Version None)
Quarter: 2011Q1

REPORT INFORMATION
  Report Type: 
  Country: None (occurrence: None)
  Receive Date: 20110202
  Receipt Date: 20110202
  Transmission Date: 20110831
  Serious: Yes (Other)
  Sender: FDA-Public Use
  Company Number: None

PATIENT
  Age: 29 Year
  Sex: Female
  Weight: 56.6996 kg

DRUGS (3)
  1. CIPROFLOXACIN [Suspect]
     Indication: COLITIS
     Dosage: 500MG 2XDAY PO
     Route: 048
     Dates: start: 20100901, end: 20110117
  2. CIPROFLOXACIN [Suspect]
     Indication: CROHN'S DISEASE
     Dosage: 500MG 2XDAY PO
     Route: 048
     Dates: start: 20100901, end: 20110117
  3. CIPROFLOXACIN [Suspect]
     Indication: INFLAMMATORY BOWEL DISEASE
     Dosage: 500MG 2XDAY PO
     Route: 048
     Dates: start: 20100901, end: 20110117

REACTIONS (9)
  - DEPRESSION [None]
  - DISTURBANCE IN ATTENTION [None]
  - DIZZINESS [None]
  - ANXIETY [None]
  - CONFUSIONAL STATE [None]
  - HEADACHE [None]
  - READING DISORDER [None]
  - SUICIDAL IDEATION [None]
  - BALANCE DISORDER [None]
